FAERS Safety Report 14800687 (Version 3)
Quarter: 2020Q3

REPORT INFORMATION
  Report Type: Report from Study
  Country: SG (occurrence: SG)
  Receive Date: 20180424
  Receipt Date: 20200605
  Transmission Date: 20201105
  Serious: Yes (Hospitalization)
  Sender: FDA-Public Use
  Company Number: SG-ASTRAZENECA-2018SE53861

PATIENT
  Age: 71 Year
  Sex: Male

DRUGS (15)
  1. GABAPENTIN CAPSULE [Concomitant]
     Active Substance: GABAPENTIN
     Indication: PAIN MANAGEMENT
     Route: 048
     Dates: start: 20180214
  2. TAMSULOSIN HCL OCAS PROLONGES RELEASE TABLET [Concomitant]
     Indication: PROSTATISM
     Route: 048
     Dates: start: 20180223
  3. NIFEDIPINE LA TABLET [Concomitant]
     Indication: HYPERTENSION
     Route: 048
     Dates: start: 20180223
  4. MORPHINE SULFATE MIXTURE [Concomitant]
     Indication: PAIN
     Route: 048
     Dates: start: 20180308
  5. MEDI4736 [Suspect]
     Active Substance: DURVALUMAB
     Indication: HEPATOCELLULAR CARCINOMA
     Route: 042
     Dates: start: 20180405
  6. MORPHINE SULFATE TABLET [Concomitant]
     Indication: PAIN MANAGEMENT
     Route: 048
  7. TREMELIMUMAB. [Suspect]
     Active Substance: TREMELIMUMAB
     Indication: HEPATOCELLULAR CARCINOMA
     Route: 042
     Dates: start: 20180405
  8. LACTULOSE SYRUP [Concomitant]
     Active Substance: LACTULOSE
     Indication: CONSTIPATION PROPHYLAXIS
     Route: 048
     Dates: start: 20180223
  9. SENNOSIDES. [Concomitant]
     Active Substance: SENNOSIDES
     Indication: CONSTIPATION PROPHYLAXIS
     Dosage: 7.5 MG
     Route: 048
     Dates: start: 20180223
  10. OMEPRAZOLE CAPSULE [Concomitant]
     Active Substance: OMEPRAZOLE
     Indication: PROPHYLAXIS AGAINST GASTROINTESTINAL ULCER
     Route: 048
     Dates: start: 20180214
  11. SIMVASTATIN TABLET [Concomitant]
     Active Substance: SIMVASTATIN
     Indication: HYPERTENSION
     Route: 048
     Dates: start: 20180223
  12. PARACETAMOL [Concomitant]
     Active Substance: ACETAMINOPHEN
     Indication: PAIN MANAGEMENT
     Route: 048
     Dates: start: 20180404
  13. HYDROCORTISONE 1% CLIOQUINOL 3% CREAM [Concomitant]
     Indication: RASH
     Route: 061
     Dates: start: 20180405
  14. FENOFIBRATE CAPSULE [Concomitant]
     Indication: HYPERLIPIDAEMIA
     Route: 048
     Dates: start: 20180223
  15. LOMOTIL TABLET [Concomitant]
     Indication: DIARRHOEA
     Route: 048
     Dates: start: 20180405

REACTIONS (1)
  - Vomiting [Recovered/Resolved]

NARRATIVE: CASE EVENT DATE: 20180419
